FAERS Safety Report 4820701-0 (Version None)
Quarter: 2005Q4

REPORT INFORMATION
  Report Type: 
  Country: None (occurrence: None)
  Receive Date: 20051103
  Receipt Date: 20051018
  Transmission Date: 20060501
  Serious: Yes (Other)
  Sender: FDA-Public Use
  Company Number: 2005-0008878

PATIENT
  Age: 42 Year
  Sex: Male

DRUGS (1)
  1. HEPSERA [Suspect]
     Indication: CHRONIC HEPATITIS
     Dosage: 10 MG 1 IN 1D ORAL
     Route: 048

REACTIONS (8)
  - BLOOD ALBUMIN DECREASED [None]
  - BLOOD BILIRUBIN INCREASED [None]
  - DRUG RESISTANCE [None]
  - HEPATITIS B DNA ASSAY POSITIVE [None]
  - INTERNATIONAL NORMALISED RATIO INCREASED [None]
  - LIVER TRANSPLANT [None]
  - REBOUND EFFECT [None]
  - VIRAL INFECTION [None]
